FAERS Safety Report 8618915-7 (Version None)
Quarter: 2012Q3

REPORT INFORMATION
  Report Type: 
  Country: None (occurrence: None)
  Receive Date: 20120824
  Receipt Date: 20120816
  Transmission Date: 20120928
  Serious: Yes (Death, Hospitalization, Other)
  Sender: FDA-Public Use
  Company Number: FR-PFIZER INC-2012205969

PATIENT
  Age: 57 Year
  Sex: Male

DRUGS (9)
  1. SOLIAN [Interacting]
     Indication: PRODUCT USED FOR UNKNOWN INDICATION
     Dosage: 100 MG, 1 TABLET DAILY
     Route: 048
     Dates: start: 20070101, end: 20120701
  2. PAROXETINE HCL [Concomitant]
     Dosage: UNK
  3. SIMVASTATIN [Concomitant]
     Dosage: UNK
  4. INSPRA [Concomitant]
     Dosage: UNK
  5. FUROSEMIDE [Concomitant]
     Dosage: UNK
  6. PLAVIX [Concomitant]
     Dosage: UNK
  7. XANAX [Concomitant]
     Dosage: UNK
  8. CORDARONE [Suspect]
     Dosage: 200 MG, 1 TABLET, 5 DAYS PER WEEK
     Route: 048
  9. BISOPROLOL FUMARATE [Interacting]
     Indication: PRODUCT USED FOR UNKNOWN INDICATION
     Dosage: 10 MG, DAILY
     Route: 048

REACTIONS (10)
  - CARDIAC FAILURE CONGESTIVE [None]
  - HEPATIC FUNCTION ABNORMAL [None]
  - DECUBITUS ULCER [None]
  - TORSADE DE POINTES [None]
  - SEPSIS [None]
  - CARDIO-RESPIRATORY ARREST [None]
  - DRUG INTERACTION [None]
  - ATRIAL FIBRILLATION [None]
  - HYPERKALAEMIA [None]
  - HYPONATRAEMIA [None]
